FAERS Safety Report 12850779 (Version 1)
Quarter: 2016Q4

REPORT INFORMATION
  Report Type: Spontaneous
  Country: US (occurrence: US)
  Receive Date: 20161014
  Receipt Date: 20161014
  Transmission Date: 20170207
  Serious: Yes (Hospitalization)
  Sender: FDA-Public Use
  Company Number: US-RELYPSA-RLY2016002955

PATIENT
  Age: 23 Year
  Sex: Female

DRUGS (14)
  1. RENVELA [Concomitant]
     Active Substance: SEVELAMER CARBONATE
  2. TRAMADOL. [Concomitant]
     Active Substance: TRAMADOL
  3. ADALAT [Concomitant]
     Active Substance: NIFEDIPINE
  4. DILATRATE [Concomitant]
  5. PROTONIX                           /00661201/ [Concomitant]
     Active Substance: OMEPRAZOLE
  6. CATAPRES-TTS [Concomitant]
     Active Substance: CLONIDINE
  7. ONDANSETRON [Concomitant]
     Active Substance: ONDANSETRON
  8. IRON W/VITAMIN B COMPLEX [Concomitant]
  9. HYDRALAZINE [Concomitant]
     Active Substance: HYDRALAZINE HYDROCHLORIDE
  10. KEPPRA [Concomitant]
     Active Substance: LEVETIRACETAM
  11. PROCARDIA [Concomitant]
     Active Substance: NIFEDIPINE
  12. VELTASSA [Suspect]
     Active Substance: PATIROMER
     Indication: HYPERKALAEMIA
     Dosage: 8.4 G, QD
     Route: 048
     Dates: start: 201607
  13. NORVASC [Concomitant]
     Active Substance: AMLODIPINE BESYLATE
  14. VIMPAT [Concomitant]
     Active Substance: LACOSAMIDE

REACTIONS (1)
  - Cardiac disorder [Unknown]

NARRATIVE: CASE EVENT DATE: 201607
